FAERS Safety Report 4575076-1 (Version None)
Quarter: 2005Q1

REPORT INFORMATION
  Report Type: 
  Country: None (occurrence: None)
  Receive Date: 20050208
  Receipt Date: 20050105
  Transmission Date: 20050727
  Serious: Yes (Hospitalization)
  Sender: FDA-Public Use
  Company Number: FR-GLAXOSMITHKLINE-B0363859A

PATIENT
  Age: 56 Year
  Sex: Female

DRUGS (8)
  1. AUGMENTIN [Suspect]
     Route: 048
     Dates: start: 20040827
  2. FLAGYL [Suspect]
     Route: 048
     Dates: start: 20040810, end: 20040812
  3. PYOSTACINE [Suspect]
     Route: 048
     Dates: start: 20040705, end: 20040805
  4. DALACINE [Suspect]
     Route: 048
     Dates: start: 20040805, end: 20040810
  5. OFLOCET [Suspect]
     Route: 048
     Dates: start: 20040810, end: 20040812
  6. FOSFOMYCIN SODIUM [Suspect]
     Dates: start: 20040829, end: 20040831
  7. RIFAMPICIN [Suspect]
     Dates: start: 20040829, end: 20040902
  8. DERMOVAL [Concomitant]
     Indication: RASH
     Route: 061

REACTIONS (11)
  - ARTHROPOD BITE [None]
  - DERMATITIS BULLOUS [None]
  - MYOFASCITIS [None]
  - NIKOLSKY'S SIGN [None]
  - PRURITUS [None]
  - PYREXIA [None]
  - RASH [None]
  - RASH MACULO-PAPULAR [None]
  - SKIN NECROSIS [None]
  - SUPERINFECTION [None]
  - TOXIC SKIN ERUPTION [None]
